FAERS Safety Report 4465170-8 (Version None)
Quarter: 2004Q3

REPORT INFORMATION
  Report Type: 
  Country: None (occurrence: None)
  Receive Date: 20040928
  Receipt Date: 20040928
  Transmission Date: 20050211
  Serious: Yes (Hospitalization)
  Sender: FDA-Public Use
  Company Number: None

PATIENT
  Age: 81 Year
  Sex: Male

DRUGS (12)
  1. VP-16 [Suspect]
     Dosage: 50 MG
  2. CYCLOPHOSPHAMIDE [Suspect]
  3. ESTRAMUSTINE [Suspect]
  4. TRICOR [Concomitant]
  5. PERCOCET [Concomitant]
  6. COMPAZINE [Concomitant]
  7. SENOKOT [Concomitant]
  8. ASPIRIN [Concomitant]
  9. LOPRESSOR [Concomitant]
  10. PLAVIX [Concomitant]
  11. LASIX [Concomitant]
  12. PROTONIX [Concomitant]

REACTIONS (1)
  - ABDOMINAL PAIN [None]
